FAERS Safety Report 9613139 (Version 2)
Quarter: 2013Q4

REPORT INFORMATION
  Report Type: Spontaneous
  Country: JP (occurrence: JP)
  Receive Date: 20131010
  Receipt Date: 20131223
  Transmission Date: 20140711
  Serious: Yes (Life-Threatening, Hospitalization)
  Sender: FDA-Public Use
  Company Number: JP-PFIZER INC-2013282866

PATIENT
  Age: 75 Year
  Sex: Male
  Weight: 62.3 kg

DRUGS (9)
  1. MYLOTARG [Suspect]
     Indication: ACUTE MYELOID LEUKAEMIA RECURRENT
     Dosage: 15 MG, 1X/DAY, CYCLIC
     Route: 042
     Dates: start: 20070220, end: 20070306
  2. IDAMYCIN [Suspect]
     Indication: ACUTE MYELOID LEUKAEMIA
     Dosage: 20 MG, 1X/DAY
     Route: 042
     Dates: start: 20040519, end: 20040521
  3. IDAMYCIN [Suspect]
     Dosage: 20 MG, 1X/DAY (2 COURSES AS CONSOLIDATION THERAPY)
     Route: 042
     Dates: start: 2004
  4. CYTARABINE [Suspect]
     Indication: ACUTE MYELOID LEUKAEMIA
     Dosage: 160 MG, CONTINUOUS DOSING, CYCLIC
     Route: 042
     Dates: start: 20040519, end: 20040526
  5. CYTARABINE [Suspect]
     Dosage: 160 MG, CONTINUOUS DOSING, CYCLIC (2 COURSES AS CONSOLIDATION THERAPY)
     Route: 042
     Dates: start: 2004
  6. CYTARABINE [Suspect]
     Dosage: 2450 MG, CONTINUOUS HIGH-DOSING, CYCLIC
     Route: 042
     Dates: start: 20070516, end: 20070519
  7. CYTARABINE [Suspect]
     Dosage: 2550 MG, CONTINUOUS HIGH-DOSING, CYCLIC
     Route: 042
     Dates: start: 20090119, end: 20090122
  8. CYTARABINE [Suspect]
     Dosage: 2540 MG, CONTINUOUS HIGH-DOSING, CYCLIC
     Route: 042
     Dates: start: 20100520, end: 20100523
  9. CYTARABINE [Suspect]
     Dosage: 2520 MG, CONTINUOUS HIGH-DOSING, CYCLIC
     Route: 042
     Dates: start: 20110824, end: 20110827

REACTIONS (2)
  - Second primary malignancy [Recovering/Resolving]
  - Burkitt^s lymphoma [Recovering/Resolving]
